FAERS Safety Report 5148665-3 (Version None)
Quarter: 2006Q4

REPORT INFORMATION
  Report Type: 
  Country: None (occurrence: None)
  Receive Date: 20061107
  Receipt Date: 20061023
  Transmission Date: 20070319
  Serious: Yes (Hospitalization)
  Sender: FDA-Public Use
  Company Number: 2006002047

PATIENT
  Age: 63 Year
  Sex: Male
  Weight: 69.4 kg

DRUGS (11)
  1. ERLOTINIB (TABLET) [Suspect]
     Indication: METASTATIC NEOPLASM
     Dosage: 150 MG, ORAL
     Route: 048
     Dates: start: 20060907
  2. ERLOTINIB (TABLET) [Suspect]
  3. BEVACIZUMAB (INJECTION FOR INFUSION) [Suspect]
     Indication: METASTATIC NEOPLASM
     Dosage: 15 MG/KG (Q3W), INTRAVENOUS
     Route: 042
     Dates: start: 20060907
  4. BEVACIZUMAB (INJECTION FOR INFUSION) [Suspect]
  5. PACLITAXEL [Suspect]
     Indication: METASTATIC NEOPLASM
     Dosage: 175 MG/M^2 (Q3W), INTRAVENOUS
     Route: 042
     Dates: start: 20060907
  6. CARBOPLATIN [Suspect]
     Indication: METASTATIC NEOPLASM
     Dosage: 6 AUC (Q3W)
     Dates: start: 20060907
  7. SERTRALINE [Concomitant]
  8. ALTACE [Concomitant]
  9. LORAZEPAM [Concomitant]
  10. REGLAN [Concomitant]
  11. PROCHLORPERAZINE MALEATE [Concomitant]

REACTIONS (3)
  - HYPONATRAEMIA [None]
  - MENTAL STATUS CHANGES [None]
  - NEUTROPENIA [None]
